FAERS Safety Report 9283419 (Version 3)
Quarter: 2013Q2

REPORT INFORMATION
  Report Type: Spontaneous
  Country: JP (occurrence: None)
  Receive Date: 20130503
  Receipt Date: 20130618
  Transmission Date: 20140414
  Serious: Yes (Hospitalization)
  Sender: FDA-Public Use
  Company Number: TCI2013A02451

PATIENT
  Sex: Female

DRUGS (1)
  1. LANSAP [Suspect]

REACTIONS (4)
  - Intestinal obstruction [None]
  - Vomiting [None]
  - Treatment noncompliance [None]
  - Diarrhoea [None]
